FAERS Safety Report 4565065-5 (Version None)
Quarter: 2005Q1

REPORT INFORMATION
  Report Type: 
  Country: None (occurrence: None)
  Receive Date: 20050131
  Receipt Date: 20050119
  Transmission Date: 20050727
  Serious: Yes (Hospitalization, Other)
  Sender: FDA-Public Use
  Company Number: FR-BRISTOL-MYERS SQUIBB COMPANY-12829388

PATIENT
  Age: 40 Year
  Sex: Male

DRUGS (4)
  1. VIDEX [Suspect]
     Indication: HIV INFECTION
     Route: 048
     Dates: end: 20040824
  2. COMBIVIR [Suspect]
     Indication: HIV INFECTION
     Route: 048
     Dates: end: 20040824
  3. BURINEX [Suspect]
     Route: 048
     Dates: end: 20040824
  4. OMEPRAZOLE [Concomitant]

REACTIONS (5)
  - ASCITES [None]
  - CIRRHOSIS ALCOHOLIC [None]
  - DISSEMINATED INTRAVASCULAR COAGULATION [None]
  - JAUNDICE [None]
  - PANCYTOPENIA [None]
